FAERS Safety Report 10685790 (Version 1)
Quarter: 2014Q4

REPORT INFORMATION
  Report Type: Spontaneous
  Country: US (occurrence: US)
  Receive Date: 20141231
  Receipt Date: 20141231
  Transmission Date: 20150529
  Serious: No
  Sender: FDA-Public Use
  Company Number: US-PFIZER INC-2014361765

PATIENT
  Age: 58 Year
  Sex: Female
  Weight: 77 kg

DRUGS (1)
  1. GABAPENTIN. [Suspect]
     Active Substance: GABAPENTIN
     Indication: MIGRAINE
     Dosage: 800 MG, 3X/DAY
     Route: 048
     Dates: end: 20141229

REACTIONS (3)
  - Product taste abnormal [Unknown]
  - Product physical issue [Unknown]
  - Choking sensation [Unknown]

NARRATIVE: CASE EVENT DATE: 20141229
